FAERS Safety Report 21254717 (Version 1)
Quarter: 2022Q3

REPORT INFORMATION
  Report Type: Spontaneous
  Country: IT (occurrence: IT)
  Receive Date: 20220825
  Receipt Date: 20220825
  Transmission Date: 20221026
  Serious: Yes (Hospitalization)
  Sender: FDA-Public Use
  Company Number: IT-TEVA-2022-IT-2068082

PATIENT
  Age: 68 Year
  Sex: Male

DRUGS (1)
  1. QUETIAPINE [Suspect]
     Active Substance: QUETIAPINE
     Indication: Psychotic disorder
     Dosage: 200 MILLIGRAM DAILY;
     Route: 065

REACTIONS (5)
  - Electrocardiogram QT prolonged [Recovering/Resolving]
  - Acute kidney injury [Recovering/Resolving]
  - Neurotoxicity [Recovering/Resolving]
  - Toxicity to various agents [Recovering/Resolving]
  - Hypernatraemia [Recovering/Resolving]
